FAERS Safety Report 6393275-3 (Version None)
Quarter: 2009Q4

REPORT INFORMATION
  Report Type: 
  Country: None (occurrence: None)
  Receive Date: 20091008
  Receipt Date: 20090730
  Transmission Date: 20100525
  Serious: No
  Sender: FDA-Public Use
  Company Number: US-BAYER-200928985NA

PATIENT
  Age: 45 Year
  Sex: Female
  Weight: 79 kg

DRUGS (1)
  1. YAZ [Suspect]
     Indication: CONTRACEPTION
     Dosage: TAKES 3 WEEKS OF HORMONE PILLS AND SKIPS LAST WEEK OF PILLS AND THEN STARTS HORMONE PILLS AGAIN
     Dates: start: 20090101

REACTIONS (4)
  - CRYING [None]
  - PREMENSTRUAL SYNDROME [None]
  - PSYCHOMOTOR HYPERACTIVITY [None]
  - THINKING ABNORMAL [None]
